FAERS Safety Report 9128223 (Version 1)
Quarter: 2013Q1

REPORT INFORMATION
  Report Type: Spontaneous
  Country: CA (occurrence: CA)
  Receive Date: 20130228
  Receipt Date: 20130228
  Transmission Date: 20140127
  Serious: Yes (Hospitalization, Other)
  Sender: FDA-Public Use
  Company Number: CA-PFIZER INC-2013068116

PATIENT
  Age: 55 Year
  Sex: Female
  Weight: 68.03 kg

DRUGS (1)
  1. CELEBREX [Suspect]
     Indication: ARTHRITIS
     Dosage: 200MG DAILY
     Dates: start: 20130205, end: 201302

REACTIONS (3)
  - Meningitis aseptic [Not Recovered/Not Resolved]
  - Brain oedema [Not Recovered/Not Resolved]
  - Headache [Unknown]
